FAERS Safety Report 22127371 (Version 1)
Quarter: 2023Q1

REPORT INFORMATION
  Report Type: Spontaneous
  Country: US (occurrence: US)
  Receive Date: 20230322
  Receipt Date: 20230322
  Transmission Date: 20230418
  Serious: No
  Sender: FDA-Public Use
  Company Number: US-ALLERGAN-2234798US

PATIENT
  Age: 31 Year
  Sex: Female

DRUGS (1)
  1. LEXAPRO [Suspect]
     Active Substance: ESCITALOPRAM OXALATE
     Indication: Product used for unknown indication

REACTIONS (3)
  - Dizziness [Unknown]
  - Nausea [Unknown]
  - Feeling hot [Unknown]

NARRATIVE: CASE EVENT DATE: 20220805
